FAERS Safety Report 7752533-8 (Version None)
Quarter: 2011Q3

REPORT INFORMATION
  Report Type: 
  Country: None (occurrence: None)
  Receive Date: 20110913
  Receipt Date: 20110830
  Transmission Date: 20111222
  Serious: Yes (Death, Other)
  Sender: FDA-Public Use
  Company Number: FK201101840

PATIENT
  Age: 74 Year
  Sex: Male

DRUGS (3)
  1. OXALIPLATIN [Suspect]
     Indication: RECTAL CANCER
     Dosage: 85MG/M2
  2. FLUOROURACIL INJ [Suspect]
     Indication: RECTAL CANCER
  3. FOLINIC ACID (FOLINIC ACID) (FOLINIC ACID) [Concomitant]

REACTIONS (7)
  - THROMBOCYTOPENIA [None]
  - INTERSTITIAL LUNG DISEASE [None]
  - NEUROPATHY PERIPHERAL [None]
  - STOMATITIS [None]
  - RESPIRATORY DISTRESS [None]
  - NEUTROPENIA [None]
  - RESPIRATORY FAILURE [None]
